FAERS Safety Report 9555911 (Version 1)
Quarter: 2013Q3

REPORT INFORMATION
  Report Type: Spontaneous
  Country: US (occurrence: None)
  Receive Date: 20130724
  Receipt Date: 20130724
  Transmission Date: 20140515
  Serious: Yes (Disabling, Other)
  Sender: FDA-Public Use
  Company Number: PHEH2013US009923

PATIENT
  Age: 31 Year
  Sex: Female
  Weight: 62.1 kg

DRUGS (3)
  1. GILENYA (FINGOLIMOD) CAPSULE, 0.5MG [Suspect]
     Indication: MULTIPLE SCLEROSIS
     Route: 048
     Dates: start: 201205, end: 201305
  2. TYLENOL (PARACETAMOL) [Concomitant]
  3. PRAVASTATIN (PRAVASTATIN) [Concomitant]

REACTIONS (1)
  - Herpes zoster [None]
